FAERS Safety Report 19414162 (Version 3)
Quarter: 2021Q2

REPORT INFORMATION
  Report Type: Spontaneous
  Country: MY (occurrence: MY)
  Receive Date: 20210615
  Receipt Date: 20210628
  Transmission Date: 20210717
  Serious: Yes (Other)
  Sender: FDA-Public Use
  Company Number: MY-ROCHE-2848988

PATIENT
  Age: 73 Year
  Sex: Female
  Weight: 65 kg

DRUGS (1)
  1. METALYSE [Suspect]
     Active Substance: TENECTEPLASE
     Indication: THROMBOTIC STROKE
     Route: 065
     Dates: start: 20210115

REACTIONS (3)
  - Cerebral haemorrhage [Recovered/Resolved]
  - Hemiparesis [Recovered/Resolved]
  - Off label use [Unknown]

NARRATIVE: CASE EVENT DATE: 20210115
